FAERS Safety Report 4551526-1 (Version None)
Quarter: 2005Q1

REPORT INFORMATION
  Report Type: 
  Country: None (occurrence: None)
  Receive Date: 20050107
  Receipt Date: 20041227
  Transmission Date: 20050727
  Serious: Yes (Life-Threatening, Hospitalization)
  Sender: FDA-Public Use
  Company Number: RENA-11209

PATIENT
  Age: 66 Year
  Sex: Female
  Weight: 33.7 kg

DRUGS (19)
  1. RENAGEL [Suspect]
     Indication: HYPERPHOSPHATAEMIA
     Dosage: 0.5 G TID PO
     Route: 048
     Dates: start: 20040414, end: 20040814
  2. RENAGEL [Suspect]
     Indication: HYPERPHOSPHATAEMIA
     Dosage: 1.25 G DAILY PO
     Route: 048
     Dates: start: 20040413, end: 20040413
  3. RENAGEL [Suspect]
     Indication: HYPERPHOSPHATAEMIA
     Dosage: 0.25 G TID PO
     Route: 048
     Dates: start: 20040224, end: 20040412
  4. PREDNISOLONE [Concomitant]
  5. KALISELUM (CALCIUM POLYSTYRENE SULFONATE) [Concomitant]
  6. PURSENNID [Concomitant]
  7. KORTRYTHM [Concomitant]
  8. TAKEPRON [Concomitant]
  9. LOXONIN [Concomitant]
  10. RYTHMODAN [Concomitant]
  11. SELBEX [Concomitant]
  12. ASPENON [Concomitant]
  13. DIGOSIN [Concomitant]
  14. OXAROL [Concomitant]
  15. LACTULOSE [Concomitant]
  16. NITRODERM [Concomitant]
  17. ALOSENN [Concomitant]
  18. LAXOBERON [Concomitant]
  19. MAGNESIUM OXIDE [Concomitant]

REACTIONS (6)
  - ABDOMINAL DISTENSION [None]
  - FLATULENCE [None]
  - INTESTINAL PERFORATION [None]
  - PROCEDURAL COMPLICATION [None]
  - RHEUMATOID ARTHRITIS [None]
  - WOUND DEHISCENCE [None]
